FAERS Safety Report 6519641-0 (Version None)
Quarter: 2009Q4

REPORT INFORMATION
  Report Type: 
  Country: None (occurrence: None)
  Receive Date: 20091228
  Receipt Date: 20091217
  Transmission Date: 20100525
  Serious: Yes (Other)
  Sender: FDA-Public Use
  Company Number: CA-BAXTER-2009BH018333

PATIENT
  Age: 54 Year
  Sex: Male

DRUGS (3)
  1. DOPAMINE HCL IN 5% DEXTROSE [Suspect]
     Indication: DRUG USE FOR UNKNOWN INDICATION
     Route: 042
  2. SODIUM CHLORIDE 0.9% IN PLASTIC CONTAINER [Suspect]
     Indication: DRUG USE FOR UNKNOWN INDICATION
     Route: 042
  3. LEVOPHED [Suspect]
     Indication: DRUG USE FOR UNKNOWN INDICATION
     Route: 042

REACTIONS (3)
  - DEVICE FAILURE [None]
  - HAEMODYNAMIC INSTABILITY [None]
  - THERAPY CESSATION [None]
